FAERS Safety Report 6953185-7 (Version None)
Quarter: 2010Q3

REPORT INFORMATION
  Report Type: 
  Country: None (occurrence: None)
  Receive Date: 20100829
  Receipt Date: 20100604
  Transmission Date: 20110219
  Serious: No
  Sender: FDA-Public Use
  Company Number: US-ABBOTT-10P-163-0648763-00

PATIENT
  Sex: Male
  Weight: 69.008 kg

DRUGS (4)
  1. NIASPAN [Suspect]
     Indication: BLOOD CHOLESTEROL INCREASED
     Dosage: AT NIGHT
  2. NIASPAN [Suspect]
     Indication: PROPHYLAXIS
  3. NIASPAN [Suspect]
     Indication: CORONARY ARTERY DISEASE
  4. UNK BLOOD PRESSURE MEDICATION [Concomitant]
     Indication: PRODUCT USED FOR UNKNOWN INDICATION

REACTIONS (1)
  - DRY MOUTH [None]
